FAERS Safety Report 15752141 (Version 1)
Quarter: 2018Q4

REPORT INFORMATION
  Report Type: Report from Study
  Country: US (occurrence: US)
  Receive Date: 20181221
  Receipt Date: 20181221
  Transmission Date: 20190205
  Serious: Yes (Other)
  Sender: FDA-Public Use
  Company Number: US-JNJFOC-20181218432

PATIENT
  Sex: Male

DRUGS (1)
  1. TREMFYA [Suspect]
     Active Substance: GUSELKUMAB
     Indication: PSORIASIS
     Route: 058
     Dates: start: 20181031

REACTIONS (10)
  - Nausea [Unknown]
  - Weight decreased [Unknown]
  - Insomnia [Unknown]
  - Headache [Unknown]
  - Pain in extremity [Unknown]
  - Diarrhoea [Unknown]
  - Arthralgia [Unknown]
  - Asthenia [Unknown]
  - Pollakiuria [Unknown]
  - Skin ulcer haemorrhage [Unknown]
